FAERS Safety Report 6645848-8 (Version None)
Quarter: 2010Q1

REPORT INFORMATION
  Report Type: 
  Country: None (occurrence: None)
  Receive Date: 20100323
  Receipt Date: 20100310
  Transmission Date: 20100710
  Serious: Yes (Hospitalization)
  Sender: FDA-Public Use
  Company Number: NL-MEDIMMUNE-MEDI-0010784

PATIENT
  Sex: Male
  Weight: 5 kg

DRUGS (3)
  1. SYNAGIS [Suspect]
     Route: 030
     Dates: start: 20091126, end: 20100215
  2. SYNAGIS [Suspect]
     Route: 030
     Dates: start: 20100310, end: 20100310
  3. FUROSEMIDE [Concomitant]

REACTIONS (4)
  - COUGH [None]
  - KIDNEY ENLARGEMENT [None]
  - PYREXIA [None]
  - RESPIRATORY RATE INCREASED [None]
